FAERS Safety Report 4447247-6 (Version None)
Quarter: 2004Q3

REPORT INFORMATION
  Report Type: 
  Country: None (occurrence: None)
  Receive Date: 20040908
  Receipt Date: 20040908
  Transmission Date: 20050211
  Serious: Yes (Hospitalization)
  Sender: FDA-Public Use
  Company Number: None

PATIENT
  Age: 59 Year
  Sex: Male

DRUGS (9)
  1. VISIPAQUE [Suspect]
     Indication: DIAGNOSTIC PROCEDURE
     Dosage: ONCE            X1
  2. FOSINOPRIL SODIUM [Suspect]
     Indication: HYPERTENSION
     Dosage: 2.5 MG QD
     Dates: start: 20040301
  3. ATENOLOL [Concomitant]
  4. THIAMINE [Concomitant]
  5. VITAMIN E [Concomitant]
  6. COMBIVENT [Concomitant]
  7. ASPIRIN [Concomitant]
  8. FOLIC ACID [Concomitant]
  9. GLYBURIDE [Concomitant]

REACTIONS (1)
  - RENAL FAILURE ACUTE [None]
